FAERS Safety Report 25932536 (Version 1)
Quarter: 2025Q4

REPORT INFORMATION
  Report Type: Spontaneous
  Country: CN (occurrence: CN)
  Receive Date: 20251017
  Receipt Date: 20251017
  Transmission Date: 20260117
  Serious: Yes (Life-Threatening, Hospitalization)
  Sender: ABBVIE
  Company Number: CN-ABBVIE-6505845

PATIENT
  Age: 13 Year
  Sex: Male
  Weight: 34 kg

DRUGS (4)
  1. VENCLEXTA [Suspect]
     Active Substance: VENETOCLAX
     Indication: Leukocytosis
     Route: 048
     Dates: start: 20250929, end: 20251005
  2. CYTARABINE [Suspect]
     Active Substance: CYTARABINE
     Indication: Leukocytosis
     Dosage: INTRAVENOUS DRIP
     Route: 065
     Dates: start: 20250926, end: 20250929
  3. CLADRIBINE [Suspect]
     Active Substance: CLADRIBINE
     Indication: Leukocytosis
     Dosage: INTRAVENOUS DRIP
     Route: 065
     Dates: start: 20250926, end: 20250929
  4. OMACETAXINE MEPESUCCINATE [Suspect]
     Active Substance: OMACETAXINE MEPESUCCINATE
     Indication: Leukocytosis
     Dosage: INTRAVENOUS DRIP
     Route: 065
     Dates: start: 20250926, end: 20251001

REACTIONS (1)
  - Myelosuppression [Not Recovered/Not Resolved]

NARRATIVE: CASE EVENT DATE: 20251008
